FAERS Safety Report 11746667 (Version 1)
Quarter: 2015Q4

REPORT INFORMATION
  Report Type: Spontaneous
  Country: US (occurrence: US)
  Receive Date: 20151117
  Receipt Date: 20151117
  Transmission Date: 20160304
  Serious: No
  Sender: FDA-Public Use
  Company Number: US-PERRIGO-14US011590

PATIENT
  Sex: Female

DRUGS (1)
  1. ERYTHROMYCIN OPHTHALMIC USP 0.5% 5W7 [Suspect]
     Active Substance: ERYTHROMYCIN
     Indication: BLEPHARITIS
     Dosage: 1/4 INCH TO BOTH EYELIDS, SINGLE
     Route: 047
     Dates: start: 2014, end: 2014

REACTIONS (1)
  - Erythema [Unknown]

NARRATIVE: CASE EVENT DATE: 2014
